FAERS Safety Report 8971367 (Version 1)
Quarter: 2012Q4

REPORT INFORMATION
  Report Type: 
  Country: JP (occurrence: JP)
  Receive Date: 20121218
  Receipt Date: 20121218
  Transmission Date: 20130627
  Serious: Yes (Hospitalization)
  Sender: FDA-Public Use
  Company Number: JP-GE HEALTHCARE MEDICAL DIAGNOSTICS-OMPQ-NO-1212S-1315

PATIENT
  Age: 63 Year
  Sex: Male

DRUGS (2)
  1. OMNIPAQUE [Suspect]
     Indication: PRIMARY HYPERALDOSTERONISM
     Route: 042
     Dates: start: 20121023, end: 20121023
  2. OMNIPAQUE [Suspect]
     Indication: DIAGNOSTIC PROCEDURE

REACTIONS (8)
  - Anaphylactic shock [Recovered/Resolved]
  - Sneezing [Recovered/Resolved]
  - Slow response to stimuli [Recovered/Resolved]
  - Blood pressure decreased [Recovered/Resolved]
  - Blood pressure immeasurable [Recovered/Resolved]
  - Faecal incontinence [Recovered/Resolved]
  - Oxygen saturation decreased [Recovered/Resolved]
  - Atrial fibrillation [Recovered/Resolved]
